FAERS Safety Report 12656095 (Version 3)
Quarter: 2016Q3

REPORT INFORMATION
  Report Type: Spontaneous
  Country: US (occurrence: US)
  Receive Date: 20160816
  Receipt Date: 20160920
  Transmission Date: 20161109
  Serious: No
  Sender: FDA-Public Use
  Company Number: US-B.I. PHARMACEUTICALS,INC./RIDGEFIELD-2016-BI-51206BP

PATIENT
  Age: 48 Year
  Sex: Male

DRUGS (5)
  1. ALBUTEROL. [Concomitant]
     Active Substance: ALBUTEROL
     Indication: CHRONIC OBSTRUCTIVE PULMONARY DISEASE
     Route: 055
     Dates: start: 201511
  2. BUPRENORPHINE  NALOXONE [Concomitant]
     Active Substance: BUPRENORPHINE\NALOXONE
     Indication: ARTHRITIS
     Dosage: DOSE PER APPLICATION:8 MG/2MG; DAILY DOSE: 24MG/6MG
     Route: 048
     Dates: start: 2013
  3. BUPRENORPHINE  NALOXONE [Concomitant]
     Active Substance: BUPRENORPHINE\NALOXONE
     Indication: INTERVERTEBRAL DISC PROTRUSION
  4. SPIRIVA [Suspect]
     Active Substance: TIOTROPIUM BROMIDE MONOHYDRATE
     Indication: CHRONIC OBSTRUCTIVE PULMONARY DISEASE
     Dosage: 18 MCG
     Route: 055
     Dates: start: 201511
  5. ADVAIR HFA [Concomitant]
     Active Substance: FLUTICASONE PROPIONATE\SALMETEROL XINAFOATE
     Indication: CHRONIC OBSTRUCTIVE PULMONARY DISEASE
     Route: 055
     Dates: start: 201511

REACTIONS (3)
  - Product quality issue [Unknown]
  - Nausea [Not Recovered/Not Resolved]
  - Pulmonary congestion [Not Recovered/Not Resolved]

NARRATIVE: CASE EVENT DATE: 201607
